FAERS Safety Report 14574127 (Version 1)
Quarter: 2018Q1

REPORT INFORMATION
  Report Type: Spontaneous
  Country: US (occurrence: US)
  Receive Date: 20180224
  Receipt Date: 20180224
  Transmission Date: 20180509
  Serious: No
  Sender: FDA-Public Use
  Company Number: None

PATIENT
  Sex: Male

DRUGS (1)
  1. GILENYA [Suspect]
     Active Substance: FINGOLIMOD HYDROCHLORIDE
     Indication: MULTIPLE SCLEROSIS
     Dosage: ONE CAPSULE DAILY BY MOUTH
     Route: 048
     Dates: start: 20170412

REACTIONS (4)
  - Pyrexia [None]
  - Tremor [None]
  - Seizure [None]
  - Oropharyngeal pain [None]
